FAERS Safety Report 8472247-9 (Version None)
Quarter: 2012Q2

REPORT INFORMATION
  Report Type: 
  Country: None (occurrence: None)
  Receive Date: 20120627
  Receipt Date: 20120619
  Transmission Date: 20120825
  Serious: Yes (Other)
  Sender: FDA-Public Use
  Company Number: US-JNJFOC-20120610509

PATIENT

DRUGS (9)
  1. BORTEZOMIB [Suspect]
     Indication: MULTIPLE MYELOMA
     Route: 065
  2. MELPHALAN HYDROCHLORIDE [Suspect]
     Indication: MULTIPLE MYELOMA
     Dosage: SINGLE DOSE OF 200 MG/M2 AND FRACTIONATED DOSE OF 50 MG/M2 ON DAYS 1-4
     Route: 065
  3. CYCLOPHOSPHAMIDE [Suspect]
     Indication: MULTIPLE MYELOMA
     Route: 065
  4. ETOPOSIDE [Suspect]
     Indication: MULTIPLE MYELOMA
     Route: 065
  5. DOXORUBICIN HCL [Suspect]
     Indication: MULTIPLE MYELOMA
     Route: 042
  6. LENALIDOMIDE [Suspect]
     Indication: MULTIPLE MYELOMA
     Route: 065
  7. THALIDOMIDE [Suspect]
     Indication: MULTIPLE MYELOMA
     Route: 065
  8. DEXAMETHASONE [Suspect]
     Indication: MULTIPLE MYELOMA
     Route: 065
  9. CISPLATIN [Suspect]
     Indication: MULTIPLE MYELOMA
     Route: 065

REACTIONS (9)
  - PHARYNGITIS [None]
  - DYSPHAGIA [None]
  - GASTROINTESTINAL TOXICITY [None]
  - TOXICITY TO VARIOUS AGENTS [None]
  - OESOPHAGITIS [None]
  - GASTRITIS [None]
  - GASTROINTESTINAL INFLAMMATION [None]
  - COLITIS [None]
  - STOMATITIS [None]
